FAERS Safety Report 4853110-9 (Version None)
Quarter: 2005Q4

REPORT INFORMATION
  Report Type: 
  Country: None (occurrence: None)
  Receive Date: 20051214
  Receipt Date: 20051205
  Transmission Date: 20060501
  Serious: Yes (Other)
  Sender: FDA-Public Use
  Company Number: PHBS2005BR18090

PATIENT
  Age: 73 Year
  Sex: Female

DRUGS (7)
  1. STALEVO 100 [Suspect]
     Indication: PARKINSON'S DISEASE
     Dosage: 200 MG, QID
     Route: 048
     Dates: start: 20040831, end: 20050101
  2. STALEVO 100 [Suspect]
     Dosage: 100 MG, QID
     Dates: start: 20040831, end: 20050101
  3. STALEVO 100 [Suspect]
     Dosage: 200 MG, TID
     Dates: start: 20050101, end: 20051101
  4. STALEVO 100 [Suspect]
     Dosage: 100 MG, TID
     Route: 048
     Dates: start: 20050101, end: 20051101
  5. STALEVO 100 [Suspect]
     Dosage: UNK, BID
     Route: 048
  6. REQUIP [Concomitant]
     Indication: PARKINSON'S DISEASE
     Dosage: 1 MG, TID
     Route: 048
     Dates: start: 20050301, end: 20051101
  7. SIFROL [Concomitant]
     Route: 048
     Dates: start: 20051124

REACTIONS (4)
  - BASAL CELL CARCINOMA [None]
  - DYSKINESIA [None]
  - PARKINSON'S DISEASE [None]
  - SURGERY [None]
